FAERS Safety Report 18889046 (Version 1)
Quarter: 2021Q1

REPORT INFORMATION
  Report Type: Spontaneous
  Country: US (occurrence: US)
  Receive Date: 20210212
  Receipt Date: 20210212
  Transmission Date: 20210420
  Serious: No
  Sender: FDA-Public Use
  Company Number: US-ROCHE-2701828

PATIENT
  Sex: Male
  Weight: 63.56 kg

DRUGS (1)
  1. ROZLYTREK [Suspect]
     Active Substance: ENTRECTINIB
     Indication: BRONCHIAL CARCINOMA
     Dosage: ONGOING: YES; ONCE DAILY
     Route: 048
     Dates: start: 20200922

REACTIONS (2)
  - Restlessness [Unknown]
  - Product dose omission in error [Unknown]
